FAERS Safety Report 16986705 (Version 1)
Quarter: 2019Q4

REPORT INFORMATION
  Report Type: Spontaneous
  Country: CA (occurrence: CA)
  Receive Date: 20191102
  Receipt Date: 20191102
  Transmission Date: 20200122
  Serious: Yes (Death, Hospitalization, Other)
  Sender: FDA-Public Use
  Company Number: CA-TEVA-2019-CA-1129254

PATIENT
  Age: 75 Year
  Sex: Male

DRUGS (4)
  1. BACILLUS CALMETTE-GUERIN VACCINE [Suspect]
     Active Substance: BCG VACCINE
     Indication: TRANSITIONAL CELL CARCINOMA
     Route: 050
  2. MYCOPHENOLATE MOFETIL. [Suspect]
     Active Substance: MYCOPHENOLATE MOFETIL
     Indication: IMMUNOSUPPRESSION
     Route: 065
  3. TACROLIMUS. [Suspect]
     Active Substance: TACROLIMUS
     Indication: IMMUNOSUPPRESSION
     Route: 065
  4. PREDNISONE. [Suspect]
     Active Substance: PREDNISONE
     Indication: IMMUNOSUPPRESSION
     Route: 065

REACTIONS (7)
  - Mycobacterial infection [Fatal]
  - Renal transplant failure [Fatal]
  - Sepsis [Fatal]
  - Weight decreased [Fatal]
  - Disseminated Bacillus Calmette-Guerin infection [Fatal]
  - Prostatitis [Fatal]
  - Renal failure [Fatal]
